FAERS Safety Report 10551274 (Version 4)
Quarter: 2014Q4

REPORT INFORMATION
  Report Type: Report from Study
  Country: DE (occurrence: DE)
  Receive Date: 20141029
  Receipt Date: 20141205
  Transmission Date: 20150529
  Serious: Yes (Other)
  Sender: FDA-Public Use
  Company Number: PHHY2014DE128737

PATIENT
  Sex: Female

DRUGS (5)
  1. GILENYA [Suspect]
     Active Substance: FINGOLIMOD HYDROCHLORIDE
     Indication: MULTIPLE SCLEROSIS
     Dosage: 0.5 MG, QD
     Route: 048
     Dates: start: 20120214, end: 20140505
  2. VALPROAT [Concomitant]
     Active Substance: VALPROATE SODIUM
     Indication: EPILEPSY
     Dosage: 500 MG, BID
     Route: 065
     Dates: start: 19981010
  3. LYRICA [Concomitant]
     Active Substance: PREGABALIN
     Indication: TRIGEMINAL NEURALGIA
     Dosage: 75 MG, BID
     Route: 048
     Dates: start: 20120130, end: 20140403
  4. CITALOPRAM [Concomitant]
     Active Substance: CITALOPRAM HYDROBROMIDE
     Indication: FATIGUE
     Dosage: 20 MG, QD
     Route: 048
     Dates: start: 20070622, end: 20140430
  5. LYRICA [Concomitant]
     Active Substance: PREGABALIN
     Dosage: 75/225 MG
     Route: 065
     Dates: start: 20120130, end: 20140404

REACTIONS (8)
  - Dizziness [Recovered/Resolved]
  - Central nervous system lesion [Unknown]
  - Rib fracture [Unknown]
  - Multiple sclerosis relapse [Recovered/Resolved]
  - Tooth fracture [Not Recovered/Not Resolved]
  - Fall [Not Recovered/Not Resolved]
  - Gait disturbance [Unknown]
  - Nausea [Recovered/Resolved]

NARRATIVE: CASE EVENT DATE: 20130719
